FAERS Safety Report 15527800 (Version 1)
Quarter: 2018Q4

REPORT INFORMATION
  Report Type: Report from Study
  Country: US (occurrence: US)
  Receive Date: 20181018
  Receipt Date: 20181018
  Transmission Date: 20190205
  Serious: No
  Sender: FDA-Public Use
  Company Number: US-AMGEN-USASL2018132108

PATIENT
  Sex: Male

DRUGS (1)
  1. REPATHA [Suspect]
     Active Substance: EVOLOCUMAB
     Indication: HYPERCHOLESTEROLAEMIA
     Dosage: 140 MG, Q2WK
     Route: 065

REACTIONS (7)
  - Oropharyngeal pain [Unknown]
  - Injection site swelling [Unknown]
  - Arthralgia [Unknown]
  - Feeling cold [Unknown]
  - Cold sweat [Unknown]
  - Pain [Unknown]
  - Hyperhidrosis [Unknown]
